FAERS Safety Report 10229690 (Version 1)
Quarter: 2014Q2

REPORT INFORMATION
  Report Type: Spontaneous
  Country: US (occurrence: None)
  Receive Date: 20140609
  Receipt Date: 20140609
  Transmission Date: 20141212
  Serious: Yes (Hospitalization)
  Sender: FDA-Public Use
  Company Number: FK201402195

PATIENT
  Age: 69 Year
  Sex: Female

DRUGS (2)
  1. ACICLOVIR (MANUFACTURER UNKNOWN)  (ACICLOVIR) (ACICLOVIR) [Suspect]
     Indication: HERPES ZOSTER
     Dosage: 800MG, 5 IN 1 D, ORAL
     Route: 048
  2. KETOROLAC TROMETHAMINE [Suspect]
     Indication: PRODUCT USED FOR UNKNOWN INDICATION

REACTIONS (11)
  - Renal failure acute [None]
  - Neurotoxicity [None]
  - Leukocytosis [None]
  - Nausea [None]
  - Dizziness [None]
  - Rash [None]
  - Confusional state [None]
  - Aphasia [None]
  - Hallucination, visual [None]
  - Dysphemia [None]
  - Cerebral microangiopathy [None]
